FAERS Safety Report 13365913 (Version 1)
Quarter: 2017Q1

REPORT INFORMATION
  Report Type: Spontaneous
  Country: US (occurrence: US)
  Receive Date: 20170323
  Receipt Date: 20170323
  Transmission Date: 20170429
  Serious: No
  Sender: FDA-Public Use
  Company Number: US-SHIRE-US201706628

PATIENT
  Sex: Female

DRUGS (1)
  1. XIIDRA [Suspect]
     Active Substance: LIFITEGRAST
     Indication: PRODUCT USED FOR UNKNOWN INDICATION
     Dosage: UNK UNK, 2X/DAY:BID
     Route: 047
     Dates: start: 201702

REACTIONS (6)
  - Instillation site pain [Unknown]
  - Dry eye [Unknown]
  - Nasopharyngitis [Unknown]
  - Instillation site discharge [Unknown]
  - Sinusitis [Unknown]
  - Inappropriate schedule of drug administration [Recovered/Resolved]
